FAERS Safety Report 5697965-7 (Version None)
Quarter: 2008Q2

REPORT INFORMATION
  Report Type: 
  Country: None (occurrence: None)
  Receive Date: 20080404
  Receipt Date: 20080404
  Transmission Date: 20081010
  Serious: Yes (Hospitalization)
  Sender: FDA-Public Use
  Company Number: None

PATIENT
  Sex: Female
  Weight: 55 kg

DRUGS (1)
  1. LORAZEPAM [Suspect]
     Dosage: 1 MG  PO
     Route: 048

REACTIONS (3)
  - PNEUMONIA [None]
  - SEDATION [None]
  - WHEEZING [None]
